FAERS Safety Report 20593091 (Version 1)
Quarter: 2022Q1

REPORT INFORMATION
  Report Type: Spontaneous
  Country: US (occurrence: None)
  Receive Date: 20220315
  Receipt Date: 20220315
  Transmission Date: 20220423
  Serious: No
  Sender: FDA-Public Use
  Company Number: US-ROCHE-2802522

PATIENT
  Age: 60 Year
  Sex: Male

DRUGS (4)
  1. XOLAIR [Suspect]
     Active Substance: OMALIZUMAB
     Indication: Asthma
     Route: 058
     Dates: start: 202008, end: 202103
  2. COVID-19 VACCINE [Concomitant]
     Dates: start: 20210314
  3. COVID-19 VACCINE [Concomitant]
     Dates: start: 20210414
  4. PREDNISONE [Concomitant]
     Active Substance: PREDNISONE
     Dates: start: 201903

REACTIONS (4)
  - Drug ineffective [Unknown]
  - Asthma [Unknown]
  - Herpes zoster [Not Recovered/Not Resolved]
  - Respiratory disorder [Unknown]

NARRATIVE: CASE EVENT DATE: 20210418
